FAERS Safety Report 9478951 (Version 2)
Quarter: 2014Q3

REPORT INFORMATION
  Report Type: Spontaneous
  Country: DK (occurrence: DK)
  Receive Date: 20130827
  Receipt Date: 20140822
  Transmission Date: 20150326
  Serious: Yes (Other)
  Sender: FDA-Public Use
  Company Number: DK-TEVA-428189ISR

PATIENT
  Sex: Female

DRUGS (6)
  1. FLUOROURACIL. [Concomitant]
     Active Substance: FLUOROURACIL
     Indication: INVASIVE LOBULAR BREAST CARCINOMA
     Dosage: A TOTAL OF 15 CEF REGIMES
     Dates: start: 2002, end: 20030522
  2. AROMASIN [Concomitant]
     Active Substance: EXEMESTANE
     Indication: INVASIVE LOBULAR BREAST CARCINOMA
     Dates: start: 201108, end: 201110
  3. LETROZOL [Concomitant]
     Active Substance: LETROZOLE
     Indication: INVASIVE LOBULAR BREAST CARCINOMA
     Dates: start: 201110
  4. CYCLOPHOSPHAMIDE. [Concomitant]
     Active Substance: CYCLOPHOSPHAMIDE
     Indication: INVASIVE LOBULAR BREAST CARCINOMA
     Dosage: A TOTAL OF 15 CEF REGIMES
     Dates: start: 2002, end: 20030522
  5. ARIMIDEX [Concomitant]
     Active Substance: ANASTROZOLE
     Indication: INVASIVE LOBULAR BREAST CARCINOMA
     Dates: start: 2003, end: 201108
  6. EPIRUBICIN [Suspect]
     Active Substance: EPIRUBICIN
     Indication: INVASIVE LOBULAR BREAST CARCINOMA
     Dosage: 102 MG IS GIVEN 15 TIMES (1530 MG)
     Route: 042
     Dates: start: 20020524, end: 20030522

REACTIONS (7)
  - Dyspnoea exertional [Not Recovered/Not Resolved]
  - Pulmonary function test decreased [Unknown]
  - Mobility decreased [Unknown]
  - Cardiac failure chronic [Not Recovered/Not Resolved]
  - Quality of life decreased [Unknown]
  - Pain [Unknown]
  - Impaired work ability [Unknown]

NARRATIVE: CASE EVENT DATE: 2004
